FAERS Safety Report 9534250 (Version 1)
Quarter: 2013Q3

REPORT INFORMATION
  Report Type: Spontaneous
  Country: US (occurrence: US)
  Receive Date: 20130918
  Receipt Date: 20130918
  Transmission Date: 20140515
  Serious: Yes (Hospitalization)
  Sender: FDA-Public Use
  Company Number: US-GLAXOSMITHKLINE-A1041750A

PATIENT
  Sex: Female

DRUGS (5)
  1. ADVAIR [Suspect]
     Indication: ASTHMA
     Dosage: 1PUFF TWICE PER DAY
     Route: 055
  2. UNKNOWN [Concomitant]
  3. BENICAR [Concomitant]
  4. NORVASC [Concomitant]
  5. VENTOLIN [Concomitant]

REACTIONS (6)
  - Spinal fracture [Unknown]
  - Abasia [Not Recovered/Not Resolved]
  - Hip arthroplasty [Unknown]
  - Arthritis [Not Recovered/Not Resolved]
  - Blood sodium decreased [Unknown]
  - Cystitis [Recovered/Resolved]
